FAERS Safety Report 8416461-7 (Version None)
Quarter: 2012Q2

REPORT INFORMATION
  Report Type: 
  Country: None (occurrence: None)
  Receive Date: 20120606
  Receipt Date: 20120529
  Transmission Date: 20120825
  Serious: Yes (Hospitalization)
  Sender: FDA-Public Use
  Company Number: US-GLAXOSMITHKLINE-A0777266A

PATIENT
  Age: 55 Year
  Sex: Female

DRUGS (1)
  1. ALLI [Suspect]
     Indication: WEIGHT DECREASED
     Route: 048
     Dates: end: 20090401

REACTIONS (4)
  - HEPATIC ENZYME INCREASED [None]
  - CHEST PAIN [None]
  - PANCREATITIS [None]
  - BACK PAIN [None]
